FAERS Safety Report 23190073 (Version 1)
Quarter: 2023Q4

REPORT INFORMATION
  Report Type: Spontaneous
  Country: US (occurrence: US)
  Receive Date: 20231116
  Receipt Date: 20231116
  Transmission Date: 20240109
  Serious: Yes (Other)
  Sender: FDA-Public Use
  Company Number: US-APOTEX-2023AP016517

PATIENT
  Age: 35 Year
  Sex: Male

DRUGS (6)
  1. TEMOZOLOMIDE [Suspect]
     Active Substance: TEMOZOLOMIDE
     Indication: Astrocytoma
     Dosage: 75 MILLIGRAM/SQ. METER, QD (50 + 75 MG/SQ METER THERAPY DURATION 13.7 MONTHS)
     Route: 065
  2. TEMOZOLOMIDE [Suspect]
     Active Substance: TEMOZOLOMIDE
     Indication: Isocitrate dehydrogenase gene mutation
     Dosage: 50 MILLIGRAM/SQ. METER, QD (50 + 75 MG/SQ METER THERAPY DURATION 13.7 MONTHS)
     Route: 065
  3. OLAPARIB [Suspect]
     Active Substance: OLAPARIB
     Indication: Astrocytoma
     Dosage: 150 MILLIGRAM, T.I.W (THERAPY DURATION: 13.7 MONTHS)
     Route: 065
  4. OLAPARIB [Suspect]
     Active Substance: OLAPARIB
     Indication: Isocitrate dehydrogenase gene mutation
  5. IVOSIDENIB [Suspect]
     Active Substance: IVOSIDENIB
     Indication: Astrocytoma
     Dosage: UNK  (THERAPY DURATION: 13.7 MONTHS)
     Route: 065
  6. IVOSIDENIB [Suspect]
     Active Substance: IVOSIDENIB
     Indication: Isocitrate dehydrogenase gene mutation

REACTIONS (6)
  - Leukopenia [Unknown]
  - Neutropenia [Unknown]
  - Toxicity to various agents [Unknown]
  - Lymphopenia [Unknown]
  - Constipation [Unknown]
  - Fatigue [Unknown]
